FAERS Safety Report 6029659-2 (Version None)
Quarter: 2009Q1

REPORT INFORMATION
  Report Type: 
  Country: None (occurrence: None)
  Receive Date: 20090107
  Receipt Date: 20081231
  Transmission Date: 20090719
  Serious: Yes (Other)
  Sender: FDA-Public Use
  Company Number: CA-JNJFOC-20090100218

PATIENT
  Age: 57 Year
  Sex: Male
  Weight: 68.04 kg

DRUGS (8)
  1. REMICADE [Suspect]
     Indication: RHEUMATOID ARTHRITIS
     Route: 042
  2. METHOTREXATE [Suspect]
     Indication: RHEUMATOID ARTHRITIS
     Route: 030
  3. PLAQUENIL [Concomitant]
     Route: 048
  4. VOLTAREN [Concomitant]
     Route: 048
  5. FOLIC ACID [Concomitant]
     Route: 048
  6. PAXIL [Concomitant]
     Route: 048
  7. HYDRAZINE [Concomitant]
     Route: 048
  8. LIPITOR [Concomitant]
     Route: 048

REACTIONS (1)
  - MALIGNANT MELANOMA [None]
